FAERS Safety Report 21837031 (Version 2)
Quarter: 2023Q1

REPORT INFORMATION
  Report Type: Spontaneous
  Country: US (occurrence: None)
  Receive Date: 20230109
  Receipt Date: 20230224
  Transmission Date: 20230417
  Serious: No
  Sender: FDA-Public Use
  Company Number: 2022A418780

PATIENT
  Age: 755 Month
  Sex: Male
  Weight: 83 kg

DRUGS (1)
  1. SYMBICORT [Suspect]
     Active Substance: BUDESONIDE\FORMOTEROL FUMARATE DIHYDRATE
     Indication: Pneumonitis
     Dosage: 160/4.5 MCG, 1 INHALATION ONCE DAILY AND AS NEEDED
     Route: 055

REACTIONS (10)
  - Suspected COVID-19 [Unknown]
  - Fatigue [Unknown]
  - Decreased appetite [Unknown]
  - Pyrexia [Unknown]
  - Sinus disorder [Not Recovered/Not Resolved]
  - Headache [Unknown]
  - Product use in unapproved indication [Unknown]
  - Wrong technique in product usage process [Unknown]
  - Device use issue [Unknown]
  - Device malfunction [Unknown]

NARRATIVE: CASE EVENT DATE: 20220701
